FAERS Safety Report 7642231-3 (Version None)
Quarter: 2011Q3

REPORT INFORMATION
  Report Type: 
  Country: None (occurrence: None)
  Receive Date: 20110728
  Receipt Date: 20110713
  Transmission Date: 20111222
  Serious: Yes (Other)
  Sender: FDA-Public Use
  Company Number: PHHY2011US52297

PATIENT
  Sex: Female

DRUGS (8)
  1. DICLOFENAC SODIUM [Concomitant]
     Dosage: UNK UKN, QD
     Route: 048
  2. XANAX [Concomitant]
     Dosage: UNK UKN, BID
  3. CETIRIZINE HCL [Concomitant]
     Dosage: UNK UKN, QD
     Route: 048
  4. ALPRAZOLAM [Concomitant]
     Dosage: UNK UKN, UNK
  5. RECLAST [Suspect]
     Indication: OSTEOPOROSIS
     Dosage: 5 MG ONCE YEARLY
     Route: 042
     Dates: start: 20110510
  6. CALCIUM ACETATE [Concomitant]
     Dosage: UNK UKN, BID
     Route: 048
  7. VITAMIN TAB [Concomitant]
     Dosage: UNK UKN, UNK
  8. OMEPRAZOLE [Concomitant]
     Dosage: UNK UKN, QD
     Route: 048

REACTIONS (8)
  - ERUCTATION [None]
  - FEELING ABNORMAL [None]
  - HEADACHE [None]
  - DYSPHONIA [None]
  - PAIN IN EXTREMITY [None]
  - CHEST PAIN [None]
  - GASTROOESOPHAGEAL REFLUX DISEASE [None]
  - PAIN [None]
